FAERS Safety Report 5158287-6 (Version None)
Quarter: 2006Q4

REPORT INFORMATION
  Report Type: 
  Country: None (occurrence: None)
  Receive Date: 20061121
  Receipt Date: 20061121
  Transmission Date: 20070319
  Serious: Yes (Hospitalization)
  Sender: FDA-Public Use
  Company Number: None

PATIENT
  Age: 69 Year
  Sex: Female

DRUGS (14)
  1. NOVOSEVEN [Suspect]
     Indication: BIOPSY LIVER
     Dosage: 1.2MG ONCE IV BOLUS
     Route: 042
     Dates: start: 20060606, end: 20060606
  2. NOVOSEVEN [Suspect]
     Indication: INTERNATIONAL NORMALISED RATIO INCREASED
     Dosage: 1.2MG ONCE IV BOLUS
     Route: 042
     Dates: start: 20060606, end: 20060606
  3. DESMOPRESSIN [Suspect]
     Indication: BIOPSY LIVER
     Dosage: 30 MCG ONCE IV DRIP
     Route: 041
     Dates: start: 20060606, end: 20060606
  4. DESMOPRESSIN [Suspect]
     Indication: INTERNATIONAL NORMALISED RATIO INCREASED
     Dosage: 30 MCG ONCE IV DRIP
     Route: 041
     Dates: start: 20060606, end: 20060606
  5. CLOPIDOGREL [Concomitant]
  6. DOCUSATE [Concomitant]
  7. PANTOPRAZOLE SODIUM [Concomitant]
  8. ASPIRIN [Concomitant]
  9. METOPROLOL SUCCINATE [Concomitant]
  10. LISINOPRIL [Concomitant]
  11. IRON POLYSACCHARIDES COMPLEX [Concomitant]
  12. CYMBALTA [Concomitant]
  13. FUROSEMIDE [Concomitant]
  14. TRAZODONE HCL [Concomitant]

REACTIONS (4)
  - ACUTE MYOCARDIAL INFARCTION [None]
  - INTERNATIONAL NORMALISED RATIO INCREASED [None]
  - PROTHROMBIN TIME PROLONGED [None]
  - STENT OCCLUSION [None]
